FAERS Safety Report 24343879 (Version 1)
Quarter: 2024Q3

REPORT INFORMATION
  Report Type: Spontaneous
  Country: CN (occurrence: CN)
  Receive Date: 20240920
  Receipt Date: 20240920
  Transmission Date: 20241017
  Serious: Yes (Death, Hospitalization)
  Sender: RANBAXY
  Company Number: CN-SUN PHARMACEUTICAL INDUSTRIES LTD-2024R1-469120

PATIENT
  Age: 52 Year
  Sex: Female

DRUGS (6)
  1. DOXORUBICIN [Suspect]
     Active Substance: DOXORUBICIN
     Indication: Enteropathy-associated T-cell lymphoma
     Dosage: UNK TWO CYCLES
     Route: 065
     Dates: start: 20230523
  2. PREDNISONE [Suspect]
     Active Substance: PREDNISONE
     Indication: Enteropathy-associated T-cell lymphoma
     Dosage: UNK TWO CYCLES
     Route: 065
     Dates: start: 20230523
  3. VINCRISTINE [Suspect]
     Active Substance: VINCRISTINE
     Indication: Enteropathy-associated T-cell lymphoma
     Dosage: UNK TWO CYCLES
     Route: 065
     Dates: start: 20230523
  4. INVESTIGATIONAL PRODUCT [Suspect]
     Active Substance: INVESTIGATIONAL PRODUCT
     Indication: Enteropathy-associated T-cell lymphoma
     Dosage: UNK TWO CYCLES
     Route: 065
     Dates: start: 20230523
  5. CYCLOPHOSPHAMIDE [Suspect]
     Active Substance: CYCLOPHOSPHAMIDE
     Indication: Enteropathy-associated T-cell lymphoma
     Dosage: UNK TWO CYCLES
     Route: 065
     Dates: start: 20230523
  6. ETOPOSIDE [Suspect]
     Active Substance: ETOPOSIDE
     Indication: Enteropathy-associated T-cell lymphoma
     Dosage: UNK TWO CYCLES
     Route: 065
     Dates: start: 20230523

REACTIONS (2)
  - Infection [Fatal]
  - Disease progression [Unknown]
